FAERS Safety Report 9776537 (Version 2)
Quarter: 2014Q1

REPORT INFORMATION
  Report Type: Report from Study
  Country: CZ (occurrence: CZ)
  Receive Date: 20131220
  Receipt Date: 20140106
  Transmission Date: 20141002
  Serious: Yes (Hospitalization, Other)
  Sender: FDA-Public Use
  Company Number: CZ-ONYX-2013-2044

PATIENT
  Age: 55 Year
  Sex: Male

DRUGS (15)
  1. CARFILZOMIB [Suspect]
     Indication: PLASMA CELL MYELOMA
     Route: 042
     Dates: start: 20130729, end: 20130730
  2. CARFILZOMIB [Suspect]
     Route: 042
     Dates: start: 20130805, end: 20130813
  3. CARFILZOMIB [Suspect]
     Route: 042
     Dates: start: 20130826, end: 20131203
  4. CARFILZOMIB [Suspect]
     Route: 042
     Dates: start: 20131230
  5. DEXAMETHASONE [Suspect]
     Indication: PLASMA CELL MYELOMA
     Route: 048
     Dates: start: 20130729, end: 20131015
  6. CALTRATE-CALCIUM,MAGNESIUM,ZINCUM,COLECALCIFEROLUM [Concomitant]
     Indication: OSTEOPOROSIS PROPHYLAXIS
     Route: 048
     Dates: start: 20060718
  7. PRESTARIUM NEO [Concomitant]
     Indication: HYPERTENSION
     Route: 048
     Dates: start: 20080516
  8. BONDRONAT [Concomitant]
     Indication: OSTEOPOROSIS PROPHYLAXIS
     Route: 048
     Dates: start: 20110609
  9. SORTIS [Concomitant]
     Indication: PROPHYLAXIS
     Route: 048
     Dates: start: 20121217
  10. HELICID [Concomitant]
     Indication: PROPHYLAXIS AGAINST GASTROINTESTINAL ULCER
     Route: 048
     Dates: start: 20130729
  11. PURINOL-ALLOPURINOLUM [Concomitant]
     Indication: HYPERURICAEMIA
     Route: 048
     Dates: start: 20130729
  12. SUMETROLIM [Concomitant]
     Indication: INFECTION PROPHYLAXIS
     Route: 048
     Dates: start: 20130729
  13. TORECAN [Concomitant]
     Indication: PROPHYLAXIS OF NAUSEA AND VOMITING
     Route: 048
     Dates: start: 20130729
  14. ZOVIRAX [Concomitant]
     Indication: ANTIVIRAL PROPHYLAXIS
     Route: 048
     Dates: start: 20130729
  15. NA2HP04 [Concomitant]
     Indication: PROPHYLAXIS
     Route: 042
     Dates: start: 20130826

REACTIONS (2)
  - Dyspnoea [Recovered/Resolved]
  - Fatigue [Recovered/Resolved]
